FAERS Safety Report 5091723-2 (Version None)
Quarter: 2006Q3

REPORT INFORMATION
  Report Type: 
  Country: None (occurrence: None)
  Receive Date: 20060824
  Receipt Date: 20060815
  Transmission Date: 20061208
  Serious: Yes (Death, Hospitalization)
  Sender: FDA-Public Use
  Company Number: 2005EU000759

PATIENT
  Age: 53 Year
  Sex: Male
  Weight: 76.4 kg

DRUGS (1)
  1. FK506(TACROLIMUS CAPSULES) [Suspect]
     Indication: LIVER TRANSPLANT
     Dosage: SEE IMAGE
     Route: 048
     Dates: start: 20040930

REACTIONS (5)
  - ATRIAL FIBRILLATION [None]
  - BILE DUCT STENOSIS [None]
  - CHOLELITHIASIS [None]
  - CHOLESTASIS [None]
  - SEPSIS [None]
